FAERS Safety Report 14208370 (Version 1)
Quarter: 2017Q4

REPORT INFORMATION
  Report Type: Spontaneous
  Country: GB (occurrence: GB)
  Receive Date: 20171120
  Receipt Date: 20171120
  Transmission Date: 20180321
  Serious: Yes (Other)
  Sender: FDA-Public Use
  Company Number: None

PATIENT
  Sex: Female

DRUGS (1)
  1. HYDROCORTISONE. [Suspect]
     Active Substance: HYDROCORTISONE
     Indication: ECZEMA

REACTIONS (8)
  - Secretion discharge [None]
  - Skin infection [None]
  - Pain [None]
  - Impaired driving ability [None]
  - Skin exfoliation [None]
  - Rash [None]
  - Loss of personal independence in daily activities [None]
  - Joint range of motion decreased [None]

NARRATIVE: CASE EVENT DATE: 20160505
